FAERS Safety Report 7821341-1 (Version None)
Quarter: 2011Q4

REPORT INFORMATION
  Report Type: 
  Country: None (occurrence: None)
  Receive Date: 20111018
  Receipt Date: 20100823
  Transmission Date: 20120403
  Serious: No
  Sender: FDA-Public Use
  Company Number: US-ASTRAZENECA-2010SE39762

PATIENT
  Sex: Female

DRUGS (5)
  1. POTASSIUM [Concomitant]
  2. TENEX [Concomitant]
  3. SYMBICORT [Suspect]
     Indication: COUGH
     Dosage: 80/4.5 UG 2 PUFFS, BID
     Route: 055
     Dates: start: 20080101
  4. SYMBICORT [Suspect]
     Dosage: 160/4.5 UG 2 PUFFS, BID
     Route: 055
     Dates: start: 20090901
  5. HYDROCHLOROTHIAZIDE [Concomitant]

REACTIONS (3)
  - PNEUMONIA [None]
  - COUGH [None]
  - DRUG DOSE OMISSION [None]
